FAERS Safety Report 5034128-2 (Version None)
Quarter: 2006Q2

REPORT INFORMATION
  Report Type: 
  Country: None (occurrence: None)
  Receive Date: 20060626
  Receipt Date: 20050816
  Transmission Date: 20061013
  Serious: Yes (Hospitalization)
  Sender: FDA-Public Use
  Company Number: DE-AVENTIS-200511829DE

PATIENT
  Age: 26 Year
  Sex: Female

DRUGS (1)
  1. CLEXANE [Suspect]
     Indication: HYPERCOAGULATION
     Route: 058
     Dates: start: 20051013

REACTIONS (7)
  - ANAEMIA [None]
  - DRUG EXPOSURE DURING PREGNANCY [None]
  - FOETAL DISTRESS SYNDROME [None]
  - GLUTAMATE DEHYDROGENASE INCREASED [None]
  - PREGNANCY [None]
  - TRANSAMINASES INCREASED [None]
  - VACUUM EXTRACTOR DELIVERY [None]
